FAERS Safety Report 9614248 (Version 2)
Quarter: 2013Q4

REPORT INFORMATION
  Report Type: Spontaneous
  Country: CA (occurrence: CA)
  Receive Date: 20131011
  Receipt Date: 20131106
  Transmission Date: 20140711
  Serious: Yes (Other)
  Sender: FDA-Public Use
  Company Number: CA-BRISTOL-MYERS SQUIBB COMPANY-19493923

PATIENT
  Age: 61 Year
  Sex: Female

DRUGS (8)
  1. GLUCOPHAGE [Suspect]
  2. COPAXONE [Suspect]
     Indication: MULTIPLE SCLEROSIS
     Dosage: INJ
     Dates: start: 20130409, end: 20130917
  3. GABAPENTIN [Suspect]
  4. AMPYRA [Suspect]
  5. CALCIUM [Concomitant]
  6. ACTONEL [Concomitant]
  7. PREMARIN [Concomitant]
  8. CLIMARA [Concomitant]

REACTIONS (1)
  - Hepatic enzyme increased [Unknown]
